FAERS Safety Report 8437242-4 (Version None)
Quarter: 2012Q2

REPORT INFORMATION
  Report Type: 
  Country: None (occurrence: None)
  Receive Date: 20120614
  Receipt Date: 20120229
  Transmission Date: 20120825
  Serious: No
  Sender: FDA-Public Use
  Company Number: US-AMGEN-USASP2011022119

PATIENT
  Age: 68 Year
  Sex: Female

DRUGS (15)
  1. STOOL SOFTENER [Concomitant]
  2. ASPIRIN [Concomitant]
     Dosage: 81 MG, QD
  3. GLUCOSAMINE/CHONDROITIN            /01625901/ [Concomitant]
  4. ADVIL PM                           /05810501/ [Concomitant]
  5. FIBER [Concomitant]
  6. PROLIA [Suspect]
     Indication: OSTEOPOROSIS POSTMENOPAUSAL
     Dosage: 60 MG, Q6MO
     Dates: start: 20100929
  7. FOLBIC [Concomitant]
  8. NAPROXEN (ALEVE) [Concomitant]
  9. DIOVAN [Concomitant]
  10. MULTIVITAMIN                       /00097801/ [Concomitant]
  11. VITAMIN D [Concomitant]
     Dosage: UNK UNK, QD
  12. CLARINEX                           /01202601/ [Concomitant]
  13. NASONEX [Concomitant]
  14. CALCIUM [Concomitant]
  15. PREMARIN [Concomitant]

REACTIONS (10)
  - IRON DEFICIENCY [None]
  - MUSCLE TIGHTNESS [None]
  - BONE PAIN [None]
  - HYPOACUSIS [None]
  - PAIN [None]
  - FATIGUE [None]
  - ASTHENIA [None]
  - PAIN IN JAW [None]
  - EUSTACHIAN TUBE OBSTRUCTION [None]
  - PAIN IN EXTREMITY [None]
